FAERS Safety Report 5514993-2 (Version None)
Quarter: 2007Q4

REPORT INFORMATION
  Report Type: 
  Country: None (occurrence: None)
  Receive Date: 20071113
  Receipt Date: 20061117
  Transmission Date: 20080405
  Serious: No
  Sender: FDA-Public Use
  Company Number: A0626355A

PATIENT
  Sex: Male

DRUGS (15)
  1. COREG [Suspect]
     Dosage: 25MG THREE TIMES PER DAY
     Route: 048
     Dates: start: 20060801
  2. TOPROL-XL [Suspect]
     Indication: DRUG USE FOR UNKNOWN INDICATION
     Route: 065
     Dates: start: 20060801
  3. SYNTHROID [Concomitant]
  4. ASPIRIN [Concomitant]
  5. PLAVIX [Concomitant]
  6. LASIX [Concomitant]
  7. ACTOS [Concomitant]
  8. MICARDIS [Concomitant]
  9. GLYBURIDE [Concomitant]
  10. XANAX [Concomitant]
  11. DARVOCET [Concomitant]
  12. FISH OIL [Concomitant]
  13. CENTRUM SILVER [Concomitant]
  14. UNKNOWN MEDICATION [Concomitant]
  15. VITAMIN D [Concomitant]

REACTIONS (3)
  - BLOOD PRESSURE INCREASED [None]
  - DRUG INEFFECTIVE [None]
  - THERAPEUTIC RESPONSE UNEXPECTED [None]
